FAERS Safety Report 21540043 (Version 1)
Quarter: 2022Q4

REPORT INFORMATION
  Report Type: Spontaneous
  Country: US (occurrence: US)
  Receive Date: 20221102
  Receipt Date: 20221102
  Transmission Date: 20230112
  Serious: Yes (Death)
  Sender: FDA-Public Use
  Company Number: US-ABBVIE-4184627

PATIENT
  Age: 74 Year
  Sex: Male

DRUGS (1)
  1. IMBRUVICA [Suspect]
     Active Substance: IBRUTINIB
     Indication: Product used for unknown indication
     Route: 048
     Dates: start: 20220321

REACTIONS (1)
  - Death [Fatal]

NARRATIVE: CASE EVENT DATE: 20221027
